FAERS Safety Report 4841012-3 (Version None)
Quarter: 2005Q4

REPORT INFORMATION
  Report Type: 
  Country: None (occurrence: None)
  Receive Date: 20051130
  Receipt Date: 20050825
  Transmission Date: 20060501
  Serious: No
  Sender: FDA-Public Use
  Company Number: US-BRISTOL-MYERS SQUIBB COMPANY-13089990

PATIENT
  Sex: Female
  Weight: 54 kg

DRUGS (5)
  1. ABILIFY [Suspect]
     Indication: GENERALISED ANXIETY DISORDER
     Dosage: REDUCED DOSAGE TO 1/2 10 MG TABLET
     Route: 048
  2. AMBIEN [Concomitant]
  3. SEROQUEL [Concomitant]
  4. NEURONTIN [Concomitant]
  5. VITAMIN B COMPLEX CAP [Concomitant]

REACTIONS (2)
  - ALOPECIA [None]
  - INSOMNIA [None]
